FAERS Safety Report 17096406 (Version 1)
Quarter: 2019Q4

REPORT INFORMATION
  Report Type: Spontaneous
  Country: DE (occurrence: DE)
  Receive Date: 20191202
  Receipt Date: 20191202
  Transmission Date: 20200122
  Serious: Yes (Other)
  Sender: FDA-Public Use
  Company Number: DE-SUN PHARMACEUTICAL INDUSTRIES LTD-2019RR-229248

PATIENT
  Sex: Female
  Weight: 78 kg

DRUGS (1)
  1. CIPRO BASICS 250MG FILMTABLETTEN [Suspect]
     Active Substance: CIPROFLOXACIN HYDROCHLORIDE
     Indication: PRODUCT USED FOR UNKNOWN INDICATION
     Dosage: 2 DOSAGE FORM, DAILY
     Route: 065
     Dates: start: 20190703, end: 20190707

REACTIONS (8)
  - Arthralgia [Unknown]
  - Swelling [Unknown]
  - Tendonitis [Unknown]
  - Polyarthritis [Unknown]
  - Myalgia [Unknown]
  - Dizziness [Unknown]
  - Paraesthesia [Unknown]
  - Tendon pain [Unknown]

NARRATIVE: CASE EVENT DATE: 20190801
